FAERS Safety Report 6881758-9 (Version None)
Quarter: 2010Q3

REPORT INFORMATION
  Report Type: 
  Country: None (occurrence: None)
  Receive Date: 20100727
  Receipt Date: 20100727
  Transmission Date: 20110219
  Serious: Yes (Hospitalization)
  Sender: FDA-Public Use
  Company Number: None

PATIENT
  Age: 39 Year
  Sex: Female

DRUGS (1)
  1. HEPAGAM B [Suspect]
     Indication: ANTIVIRAL PROPHYLAXIS
     Dosage: 10000UNITS EVERY 30 DAYS IV
     Route: 042
     Dates: start: 20100617, end: 20100617

REACTIONS (2)
  - INFUSION RELATED REACTION [None]
  - TRANSFUSION-RELATED ACUTE LUNG INJURY [None]
